FAERS Safety Report 9136794 (Version 1)
Quarter: 2013Q1

REPORT INFORMATION
  Report Type: Spontaneous
  Country: US (occurrence: US)
  Receive Date: 20130304
  Receipt Date: 20130304
  Transmission Date: 20140127
  Serious: No
  Sender: FDA-Public Use
  Company Number: US-ABBOTT-12P-163-0928997-00

PATIENT
  Sex: Male

DRUGS (5)
  1. ANDROGEL 1% [Suspect]
     Indication: BLOOD TESTOSTERONE DECREASED
     Dosage: 1 PACKET DAILY
     Route: 061
     Dates: start: 2007
  2. ANDROGEL 1% [Suspect]
     Dosage: PACKET AND A HALF A DAY
     Route: 061
  3. ANDROGEL 1% [Suspect]
     Dosage: 2 PACKETS A DAY
  4. ANDROGEL 1% [Suspect]
     Dosage: 3 PACKETS A DAY
     Route: 061
  5. ANDROGEL 1% [Suspect]
     Dosage: 4 PACKETS A DAY
     Route: 061
     Dates: start: 201203

REACTIONS (4)
  - Incorrect dose administered [Not Recovered/Not Resolved]
  - Drug ineffective [Not Recovered/Not Resolved]
  - Inappropriate schedule of drug administration [Unknown]
  - Erectile dysfunction [Recovered/Resolved]
